FAERS Safety Report 6936080-9 (Version None)
Quarter: 2010Q3

REPORT INFORMATION
  Report Type: 
  Country: None (occurrence: None)
  Receive Date: 20100819
  Receipt Date: 20100819
  Transmission Date: 20110219
  Serious: No
  Sender: FDA-Public Use
  Company Number: None

PATIENT
  Age: 7 Year
  Sex: Female
  Weight: 53.5244 kg

DRUGS (1)
  1. RITALIN [Suspect]
     Indication: ATTENTION DEFICIT/HYPERACTIVITY DISORDER
     Dosage: I WAS TOO YOUNG TO REMEMBER TWICE DAILY PO
     Route: 048
     Dates: start: 19850901, end: 19941101

REACTIONS (8)
  - AFFECTIVE DISORDER [None]
  - BIPOLAR DISORDER [None]
  - BORDERLINE PERSONALITY DISORDER [None]
  - DEPRESSION [None]
  - ECONOMIC PROBLEM [None]
  - MALAISE [None]
  - SUBSTANCE ABUSE [None]
  - UNEVALUABLE EVENT [None]
